FAERS Safety Report 7171726 (Version 5)
Quarter: 2012Q4

REPORT INFORMATION
  Report Type: Report from Study
  Country: US (occurrence: US)
  Receive Date: 20091110
  Receipt Date: 20121130
  Transmission Date: 20130627
  Serious: Yes (Death, Hospitalization, Other)
  Sender: FDA-Public Use
  Company Number: US-ROCHE-666690

PATIENT
  Age: 54 Year
  Sex: Male
  Weight: 114.8 kg

DRUGS (3)
  1. CAPECITABINE [Suspect]
     Indication: HEPATIC NEOPLASM MALIGNANT
     Dosage: ROUTE: BY MOUTH
     Route: 048
     Dates: start: 20090929, end: 20100101
  2. ERLOTINIB [Suspect]
     Indication: HEPATIC NEOPLASM MALIGNANT
     Route: 048
  3. THALOMID [Suspect]
     Indication: PRODUCT USED FOR UNKNOWN INDICATION
     Dosage: TAKEN AT NIGHT
     Route: 048

REACTIONS (7)
  - Death [Fatal]
  - Constipation [Recovered/Resolved]
  - Full blood count decreased [Unknown]
  - Transfusion [Unknown]
  - Metastases to pancreas [Not Recovered/Not Resolved]
  - Blood albumin decreased [Unknown]
  - Oedema peripheral [Not Recovered/Not Resolved]
